FAERS Safety Report 7592123-3 (Version None)
Quarter: 2011Q3

REPORT INFORMATION
  Report Type: 
  Country: None (occurrence: None)
  Receive Date: 20110705
  Receipt Date: 20110705
  Transmission Date: 20111222
  Serious: No
  Sender: FDA-Public Use
  Company Number: None

PATIENT
  Age: 36 Year
  Sex: Male
  Weight: 90.2658 kg

DRUGS (1)
  1. LEVAQUIN [Suspect]
     Indication: SINUSITIS
     Dosage: ONE TABLET DAILY PO
     Route: 048
     Dates: start: 20110621, end: 20110701

REACTIONS (5)
  - DIZZINESS [None]
  - PARAESTHESIA [None]
  - ARTHRALGIA [None]
  - DEPRESSION [None]
  - HEART RATE INCREASED [None]
